FAERS Safety Report 7589606-9 (Version None)
Quarter: 2011Q2

REPORT INFORMATION
  Report Type: 
  Country: None (occurrence: None)
  Receive Date: 20110627
  Receipt Date: 20110613
  Transmission Date: 20111010
  Serious: Yes (Other)
  Sender: FDA-Public Use
  Company Number: 2011-00648

PATIENT
  Age: 31 Year
  Sex: Female
  Weight: 63.5036 kg

DRUGS (1)
  1. LISINOPRIL AND HYDROCHLOROTHIAZIDE [Suspect]
     Indication: HYPERTENSION
     Dosage: 20MG/25MG (1 IN 1 D), PER ORAL
     Route: 048
     Dates: start: 20090101

REACTIONS (3)
  - BREAST MASS [None]
  - UTERINE LEIOMYOMA [None]
  - NEPHROLITHIASIS [None]
